FAERS Safety Report 7491745-8 (Version None)
Quarter: 2011Q2

REPORT INFORMATION
  Report Type: 
  Country: None (occurrence: None)
  Receive Date: 20110518
  Receipt Date: 20110518
  Transmission Date: 20111010
  Serious: Yes (Other)
  Sender: FDA-Public Use
  Company Number: None

PATIENT
  Sex: Female
  Weight: 95.2 kg

DRUGS (1)
  1. ENBREL [Suspect]
     Dosage: 50MG BIW SQ
     Route: 058
     Dates: start: 20110503, end: 20110513

REACTIONS (4)
  - INJECTION SITE ERYTHEMA [None]
  - LOCAL SWELLING [None]
  - INJECTION SITE WARMTH [None]
  - PRURITUS [None]
